FAERS Safety Report 14586114 (Version 2)
Quarter: 2018Q2

REPORT INFORMATION
  Report Type: Not Available
  Country: US (occurrence: US)
  Receive Date: 20180301
  Receipt Date: 20180424
  Transmission Date: 20180711
  Serious: No
  Sender: FDA-Public Use
  Company Number: US-ACORDA-ACO_147188_2018

PATIENT
  Sex: Female

DRUGS (7)
  1. AMPYRA [Suspect]
     Active Substance: DALFAMPRIDINE
     Indication: MULTIPLE SCLEROSIS
     Dosage: 10 MG, BID
     Route: 048
     Dates: start: 20150831
  2. VITAMIN B12 [Concomitant]
     Active Substance: CYANOCOBALAMIN
     Indication: PRODUCT USED FOR UNKNOWN INDICATION
     Dosage: 50 ??G, UNK
     Route: 065
  3. PROVIGIL [Concomitant]
     Active Substance: MODAFINIL
     Indication: PRODUCT USED FOR UNKNOWN INDICATION
     Dosage: 100 MG, UNK
     Route: 065
  4. PAROXETINE. [Concomitant]
     Active Substance: PAROXETINE
     Indication: PRODUCT USED FOR UNKNOWN INDICATION
     Dosage: 25 MG, UNK
     Route: 065
  5. MULTIVITAMIN [Concomitant]
     Active Substance: VITAMINS
     Indication: PRODUCT USED FOR UNKNOWN INDICATION
     Dosage: UNK
     Route: 065
  6. GNP VITAMIN D [Concomitant]
     Indication: PRODUCT USED FOR UNKNOWN INDICATION
     Dosage: 400 IU, UNK
     Route: 065
  7. GILENYA [Concomitant]
     Active Substance: FINGOLIMOD HYDROCHLORIDE
     Indication: PRODUCT USED FOR UNKNOWN INDICATION
     Dosage: UNK, QOD
     Route: 065

REACTIONS (1)
  - No adverse event [Unknown]
